FAERS Safety Report 4816164-1 (Version None)
Quarter: 2005Q4

REPORT INFORMATION
  Report Type: 
  Country: None (occurrence: None)
  Receive Date: 20051026
  Receipt Date: 20051017
  Transmission Date: 20060501
  Serious: Yes (Hospitalization)
  Sender: FDA-Public Use
  Company Number: CFX20050024

PATIENT
  Age: 80 Year
  Sex: Female

DRUGS (10)
  1. CIPROFLOXACIN [Suspect]
     Indication: OSTEOMYELITIS
     Dosage: 750 MG BID PO
     Route: 048
     Dates: start: 20031229, end: 20040301
  2. LEVOTHYROXINE [Suspect]
     Indication: THYROID FUNCTION TEST ABNORMAL
     Dosage: 125 UG DAILY PO
     Route: 048
     Dates: start: 20030101, end: 20040101
  3. PROPRANOLOL [Concomitant]
  4. FUROSEMIDE [Concomitant]
  5. CALCITRIOL [Concomitant]
  6. RANITIDINE [Concomitant]
  7. METHENAMINE HIPPURATE [Concomitant]
  8. MORPHINE [Concomitant]
  9. ONDANSETRON [Concomitant]
  10. ACETAMINOPHEN [Concomitant]

REACTIONS (5)
  - DRUG EFFECT DECREASED [None]
  - DRUG INTERACTION [None]
  - FATIGUE [None]
  - HYPOTHYROIDISM [None]
  - THYROID CANCER METASTATIC [None]
